FAERS Safety Report 7808625-8 (Version None)
Quarter: 2011Q4

REPORT INFORMATION
  Report Type: 
  Country: None (occurrence: None)
  Receive Date: 20111012
  Receipt Date: 20110930
  Transmission Date: 20120403
  Serious: Yes (Hospitalization, Other)
  Sender: FDA-Public Use
  Company Number: US-CELGENEUS-163-21880-11100115

PATIENT
  Age: 80 Year
  Sex: Female
  Weight: 82.537 kg

DRUGS (2)
  1. BORTEZOMIB [Suspect]
     Indication: MULTIPLE MYELOMA
     Dosage: 2.1 MILLIGRAM
     Route: 041
     Dates: start: 20110708
  2. REVLIMID [Suspect]
     Indication: MULTIPLE MYELOMA
     Dosage: 15 MILLIGRAM
     Route: 048

REACTIONS (3)
  - HEMIPARESIS [None]
  - COMPRESSION FRACTURE [None]
  - PLATELET COUNT DECREASED [None]
